FAERS Safety Report 9381505 (Version 1)
Quarter: 2013Q3

REPORT INFORMATION
  Report Type: Spontaneous
  Country: US (occurrence: US)
  Receive Date: 20130703
  Receipt Date: 20130703
  Transmission Date: 20140515
  Serious: No
  Sender: FDA-Public Use
  Company Number: US-BAYER-2013-081316

PATIENT
  Age: 61 Year
  Sex: Male

DRUGS (1)
  1. CLIMARA [Suspect]
     Dosage: UNK
     Dates: start: 20130701, end: 20130701

REACTIONS (1)
  - Accidental exposure to product [Recovered/Resolved]
